FAERS Safety Report 4426575-4 (Version None)
Quarter: 2004Q3

REPORT INFORMATION
  Report Type: 
  Country: None (occurrence: None)
  Receive Date: 20040812
  Receipt Date: 20040812
  Transmission Date: 20050211
  Serious: Yes (Disabling)
  Sender: FDA-Public Use
  Company Number: None

PATIENT
  Age: 26 Year
  Sex: Male
  Weight: 124.2856 kg

DRUGS (2)
  1. SERTRALINE HCL [Suspect]
     Indication: GENERALISED ANXIETY DISORDER
     Dosage: 50MG DAILY ORAL
     Route: 048
     Dates: start: 20040805, end: 20040810
  2. SERTRALINE HCL [Suspect]
     Indication: PANIC ATTACK
     Dosage: 50MG DAILY ORAL
     Route: 048
     Dates: start: 20040805, end: 20040810

REACTIONS (8)
  - DYSPHAGIA [None]
  - DYSPNOEA [None]
  - DYSTONIA [None]
  - HYPERTENSION [None]
  - LARYNGOSPASM [None]
  - PANIC REACTION [None]
  - TACHYCARDIA [None]
  - YAWNING [None]
